FAERS Safety Report 4610794-8 (Version None)
Quarter: 2005Q2

REPORT INFORMATION
  Report Type: 
  Country: None (occurrence: None)
  Receive Date: 20050223
  Receipt Date: 20040130
  Transmission Date: 20051028
  Serious: Yes (Other)
  Sender: FDA-Public Use
  Company Number: WAES 0402USA00061

PATIENT
  Sex: Male

DRUGS (5)
  1. ZOCOR [Suspect]
     Indication: BLOOD CHOLESTEROL INCREASED
     Dosage: 20 MG/PO
     Route: 048
     Dates: start: 20011212
  2. FLUDROCORTONE [Concomitant]
  3. LEVOXYL [Concomitant]
  4. PROAMATINE [Concomitant]
  5. POTASSIUM CHLORIDE [Concomitant]

REACTIONS (2)
  - ASTHENIA [None]
  - EYE SWELLING [None]
